FAERS Safety Report 5290262-3 (Version None)
Quarter: 2007Q2

REPORT INFORMATION
  Report Type: 
  Country: None (occurrence: None)
  Receive Date: 20070406
  Receipt Date: 20070330
  Transmission Date: 20071010
  Serious: Yes (Death)
  Sender: FDA-Public Use
  Company Number: JP-MERCK-0703USA04911

PATIENT
  Age: 84 Year
  Sex: Male

DRUGS (9)
  1. HYZAAR [Suspect]
     Indication: HYPERTENSION
     Route: 048
     Dates: start: 20070223, end: 20070316
  2. ASPIRIN [Suspect]
     Indication: ANGINA PECTORIS
     Route: 048
     Dates: start: 20070223, end: 20070316
  3. SELBEX [Suspect]
     Route: 048
     Dates: start: 20070223, end: 20070316
  4. [THERAPY UNSPECIFIED] [Concomitant]
     Indication: HYPERTENSION
     Route: 065
     Dates: start: 20070202, end: 20070222
  5. SIGMART [Suspect]
     Indication: ANGINA PECTORIS
     Route: 048
     Dates: start: 20070202, end: 20070316
  6. COZAAR [Suspect]
     Indication: HYPERTENSION
     Route: 048
     Dates: start: 20070309, end: 20070316
  7. COZAAR [Suspect]
     Route: 048
     Dates: start: 20070202
  8. COZAAR [Suspect]
     Route: 048
     Dates: start: 20070216, end: 20070308
  9. COZAAR [Suspect]
     Route: 048
     Dates: end: 20070223

REACTIONS (1)
  - SUDDEN DEATH [None]
